FAERS Safety Report 8587023 (Version 3)
Quarter: 2012Q4

REPORT INFORMATION
  Report Type: 
  Country: US (occurrence: US)
  Receive Date: 20120530
  Receipt Date: 20120910
  Transmission Date: 20130627
  Serious: Yes (Death, Hospitalization)
  Sender: FDA-Public Use
  Company Number: US-INCYTE CORPORATION-2012IN000864

PATIENT
  Age: 75 Year
  Sex: Male
  Weight: 57.14 kg

DRUGS (7)
  1. JAKAFI [Suspect]
     Indication: MYELOFIBROSIS
     Dosage: 20 mg, bid
     Route: 048
     Dates: start: 201202, end: 201204
  2. DETROL [Concomitant]
     Dosage: 4 mg, UNK
  3. ALLOPURINOL [Concomitant]
     Dosage: 100 mg, UNK
  4. HYDROXYUREA [Concomitant]
     Dosage: 500 mg, UNK
  5. ULTRAM [Concomitant]
     Dosage: 200 mg, UNK
  6. OMEPRAZOLE [Concomitant]
     Dosage: 20.6 mg, UNK
  7. HYDREA [Concomitant]

REACTIONS (2)
  - Acute myeloid leukaemia [Fatal]
  - Dehydration [Unknown]
